FAERS Safety Report 7280981-1 (Version None)
Quarter: 2010Q4

REPORT INFORMATION
  Report Type: 
  Country: None (occurrence: None)
  Receive Date: 20101221
  Receipt Date: 20091207
  Transmission Date: 20110411
  Serious: Yes (Hospitalization)
  Sender: FDA-Public Use
  Company Number: WAES 0912USA01065

PATIENT
  Age: 75 Year
  Sex: Female

DRUGS (8)
  1. JANUVIA [Suspect]
     Indication: TYPE 2 DIABETES MELLITUS
     Dosage: 100 MG/DAILY/PO
     Route: 048
     Dates: start: 20090617
  2. COREG [Concomitant]
  3. LASIX [Concomitant]
  4. NEXIUM [Concomitant]
  5. REGLAN [Concomitant]
  6. ASPIRIN [Concomitant]
  7. ESTRADIOL [Concomitant]
  8. INFLUENZA VIRUS VACCINE [Concomitant]

REACTIONS (1)
  - PANCREATITIS [None]
